FAERS Safety Report 9027334 (Version 1)
Quarter: 2013Q1

REPORT INFORMATION
  Report Type: Spontaneous
  Country: US (occurrence: US)
  Receive Date: 20130123
  Receipt Date: 20130123
  Transmission Date: 20140127
  Serious: No
  Sender: FDA-Public Use
  Company Number: US-ASTRAZENECA-2013SE02233

PATIENT
  Age: 638 Month
  Sex: Male
  Weight: 68 kg

DRUGS (2)
  1. NEXIUM [Suspect]
     Indication: GASTROOESOPHAGEAL REFLUX DISEASE
     Route: 048
     Dates: start: 201212
  2. ALEVE [Concomitant]

REACTIONS (4)
  - Dry mouth [Unknown]
  - Constipation [Unknown]
  - Drug effect delayed [Unknown]
  - Off label use [Unknown]
